FAERS Safety Report 6059675-6 (Version None)
Quarter: 2009Q1

REPORT INFORMATION
  Report Type: 
  Country: None (occurrence: None)
  Receive Date: 20090128
  Receipt Date: 20090115
  Transmission Date: 20090719
  Serious: Yes (Hospitalization)
  Sender: FDA-Public Use
  Company Number: CIO08021376

PATIENT
  Age: 68 Year
  Sex: Male
  Weight: 71.2 kg

DRUGS (3)
  1. NYQUIL COLD/FLU, PSEUDOPHEDRINE FREE (PARACETAMOL 325 MG, DEXTROMETHOR [Suspect]
     Indication: ATTENTION DEFICIT/HYPERACTIVITY DISORDER
     Dosage: 1 LIQCAP, 1 ONLY FOR 1 DAY, ORAL
     Route: 048
     Dates: start: 20081209, end: 20081209
  2. NYQUIL COLD/FLU, PSEUDOPHEDRINE FREE (PARACETAMOL 325 MG, DEXTROMETHOR [Suspect]
     Indication: NASAL CONGESTION
     Dosage: 1 LIQCAP, 1 ONLY FOR 1 DAY, ORAL
     Route: 048
     Dates: start: 20081209, end: 20081209
  3. NYQUIL COLD/FLU, PSEUDOPHEDRINE FREE (PARACETAMOL 325 MG, DEXTROMETHOR [Suspect]
     Indication: SLEEP DISORDER
     Dosage: 1 LIQCAP, 1 ONLY FOR 1 DAY, ORAL
     Route: 048
     Dates: start: 20081209, end: 20081209

REACTIONS (3)
  - BLOOD PRESSURE DECREASED [None]
  - LOSS OF CONSCIOUSNESS [None]
  - SOMNOLENCE [None]
